FAERS Safety Report 12484878 (Version 1)
Quarter: 2016Q2

REPORT INFORMATION
  Report Type: Not Available
  Country: None (occurrence: US)
  Receive Date: 20160621
  Receipt Date: 20160621
  Transmission Date: 20160902
  Serious: No
  Sender: FDA-Public Use
  Company Number: US-AKORN-22252

PATIENT
  Age: 89 Year
  Sex: Male

DRUGS (1)
  1. CHLORHEXIDINE GLUCONATE ORAL RINSE 0.12 % [Suspect]
     Active Substance: CHLORHEXIDINE GLUCONATE

REACTIONS (1)
  - Tongue discolouration [None]
